FAERS Safety Report 10419973 (Version 2)
Quarter: 2014Q3

REPORT INFORMATION
  Report Type: Spontaneous
  Country: JP (occurrence: JP)
  Receive Date: 20140829
  Receipt Date: 20140919
  Transmission Date: 20150326
  Serious: Yes (Other)
  Sender: FDA-Public Use
  Company Number: JP-MERCK-1408JPN017017

PATIENT
  Sex: Male

DRUGS (4)
  1. GLACTIV [Suspect]
     Active Substance: SITAGLIPTIN
     Indication: TYPE 1 DIABETES MELLITUS
     Dosage: 50 MG ONCE A DAY
     Route: 048
     Dates: start: 2014, end: 2014
  2. EUGLUCON [Concomitant]
     Active Substance: GLYBURIDE
     Indication: TYPE 1 DIABETES MELLITUS
     Dosage: 1.25 MG, QD
     Route: 048
     Dates: start: 201404, end: 2014
  3. GLACTIV [Suspect]
     Active Substance: SITAGLIPTIN
     Dosage: 100 MG ONCE A DAY
     Route: 048
     Dates: start: 2014
  4. EUGLUCON [Concomitant]
     Active Substance: GLYBURIDE
     Dosage: 6 MG, QD AS NEEDED
     Route: 048
     Dates: start: 2014

REACTIONS (2)
  - Hyperglycaemia [Unknown]
  - Off label use [Unknown]

NARRATIVE: CASE EVENT DATE: 2014
